FAERS Safety Report 5016430-3 (Version None)
Quarter: 2006Q2

REPORT INFORMATION
  Report Type: 
  Country: None (occurrence: None)
  Receive Date: 20060602
  Receipt Date: 20060216
  Transmission Date: 20061013
  Serious: Yes (Other)
  Sender: FDA-Public Use
  Company Number: PHNU2006DE00945

PATIENT
  Age: 60 Year
  Sex: Female

DRUGS (3)
  1. AREDIA [Suspect]
     Indication: BREAST CANCER METASTATIC
     Dosage: 90 MG, QMO
     Route: 042
     Dates: start: 20010501, end: 20031101
  2. ZOMETA [Suspect]
     Indication: BREAST CANCER METASTATIC
     Dosage: 4 MG, QMO
     Route: 042
     Dates: start: 20031101, end: 20041001
  3. EPIRUBICIN [Concomitant]
     Dates: start: 20010301, end: 20010901

REACTIONS (8)
  - ACTINOMYCOSIS [None]
  - BONE DISORDER [None]
  - BONE TRIMMING [None]
  - IMPAIRED HEALING [None]
  - OSTEONECROSIS [None]
  - PLASTIC SURGERY [None]
  - PRIMARY SEQUESTRUM [None]
  - TOOTH EXTRACTION [None]
